FAERS Safety Report 5264412-9 (Version None)
Quarter: 2007Q1

REPORT INFORMATION
  Report Type: 
  Country: None (occurrence: None)
  Receive Date: 20070309
  Receipt Date: 20070222
  Transmission Date: 20070707
  Serious: Yes (Hospitalization, Other)
  Sender: FDA-Public Use
  Company Number: 2007SP003500

PATIENT
  Age: 56 Year
  Sex: Female

DRUGS (7)
  1. PEG-INTRON [Suspect]
     Indication: HEPATITIS C
     Dosage: SEE IMAGE
     Route: 058
     Dates: start: 20030613, end: 20031218
  2. PEG-INTRON [Suspect]
     Indication: HEPATITIS C
     Dosage: SEE IMAGE
     Route: 058
     Dates: start: 20040317
  3. REBETOL [Suspect]
     Indication: HEPATITIS C
     Dosage: SEE IMAGE
     Route: 048
     Dates: start: 20030613, end: 20031218
  4. REBETOL [Suspect]
     Indication: HEPATITIS C
     Dosage: SEE IMAGE
     Route: 048
     Dates: start: 20040317
  5. FLEXERIL [Concomitant]
  6. LORAZEPAM [Concomitant]
  7. MS CONTIN [Concomitant]

REACTIONS (15)
  - AMNESIA [None]
  - ASTHENIA [None]
  - CATARACT OPERATION [None]
  - DEPRESSION [None]
  - GENERALISED OEDEMA [None]
  - HALLUCINATION, AUDITORY [None]
  - HALLUCINATION, VISUAL [None]
  - INFLUENZA LIKE ILLNESS [None]
  - KNEE ARTHROPLASTY [None]
  - LOCALISED INFECTION [None]
  - PLATELET COUNT DECREASED [None]
  - RECTAL PERFORATION [None]
  - THYROID DISORDER [None]
  - VAGINAL FISTULA [None]
  - VISUAL DISTURBANCE [None]
